FAERS Safety Report 8801403 (Version 2)
Quarter: 2012Q4

REPORT INFORMATION
  Report Type: 
  Country: TW (occurrence: TW)
  Receive Date: 20120921
  Receipt Date: 20120925
  Transmission Date: 20130627
  Serious: Yes (Hospitalization)
  Sender: FDA-Public Use
  Company Number: TW-ABBOTT-12P-153-0980319-00

PATIENT
  Sex: Female
  Weight: 63 kg

DRUGS (1)
  1. HUMIRA PRE-FILLED SYRINGE [Suspect]
     Indication: RHEUMATOID ARTHRITIS
     Route: 058
     Dates: start: 20120402, end: 20120612

REACTIONS (11)
  - Chills [Unknown]
  - Urinary tract infection [Recovering/Resolving]
  - Flank pain [Unknown]
  - Cough [Unknown]
  - Oropharyngeal pain [Unknown]
  - Flank pain [Unknown]
  - Pyelonephritis acute [Unknown]
  - Pyrexia [Unknown]
  - Flank pain [Unknown]
  - Pain [Unknown]
  - Unevaluable event [Unknown]
